FAERS Safety Report 4365566-9 (Version None)
Quarter: 2004Q2

REPORT INFORMATION
  Report Type: 
  Country: None (occurrence: None)
  Receive Date: 20040526
  Receipt Date: 20040507
  Transmission Date: 20050107
  Serious: Yes (Death)
  Sender: FDA-Public Use
  Company Number: GB-ROCHE-366910

PATIENT
  Age: 68 Year
  Sex: Male
  Weight: 60.4 kg

DRUGS (7)
  1. CAPECITABINE [Suspect]
     Dosage: INTERMITTENT THERAPY OF TWO WEEKS TREATMENT FOLLOWED BY ONE WEEK'S REST EVERY THREE WEEKS.
     Route: 048
     Dates: start: 20040310, end: 20040416
  2. OXALIPLATIN [Suspect]
     Route: 042
     Dates: start: 20040310, end: 20040416
  3. SIMVASTATIN [Concomitant]
     Dates: end: 20040415
  4. ASPIRIN [Concomitant]
     Dates: end: 20040415
  5. ATENOLOL [Concomitant]
     Dates: end: 20040415
  6. BENDROFLUAZIDE [Concomitant]
     Dates: end: 20040415
  7. LOMOTIL [Concomitant]
     Dates: start: 20040315, end: 20040415

REACTIONS (1)
  - DIARRHOEA [None]
